FAERS Safety Report 5051633-3 (Version None)
Quarter: 2006Q3

REPORT INFORMATION
  Report Type: 
  Country: None (occurrence: None)
  Receive Date: 20060714
  Receipt Date: 20060707
  Transmission Date: 20061208
  Serious: Yes (Hospitalization, Other)
  Sender: FDA-Public Use
  Company Number: JP-GLAXOSMITHKLINE-B0430514A

PATIENT
  Age: 64 Year
  Sex: Male

DRUGS (9)
  1. EPIVIR [Suspect]
     Indication: HIV INFECTION
     Dosage: 300MG PER DAY
     Route: 048
     Dates: start: 19990901, end: 20001213
  2. EPIVIR [Suspect]
     Dosage: 300MG PER DAY
     Route: 048
     Dates: start: 20010213, end: 20051206
  3. EPIVIR [Suspect]
     Dosage: 150MG TWICE PER DAY
     Route: 048
     Dates: start: 20060112
  4. RETROVIR [Suspect]
     Indication: HIV INFECTION
     Dosage: 400MG PER DAY
     Route: 048
     Dates: start: 20000106, end: 20000117
  5. RETROVIR [Suspect]
     Route: 048
     Dates: start: 20010213, end: 20051206
  6. RETROVIR [Suspect]
     Dosage: 400MG PER DAY
     Route: 048
     Dates: start: 20060112
  7. STOCRIN [Suspect]
     Indication: HIV INFECTION
     Dosage: 600MG PER DAY
     Route: 048
     Dates: start: 20010213, end: 20050405
  8. STOCRIN [Suspect]
     Dosage: 400MG PER DAY
     Route: 048
     Dates: start: 20050406
  9. VIREAD [Concomitant]
     Indication: HIV INFECTION
     Route: 048
     Dates: start: 20051207, end: 20060111

REACTIONS (2)
  - CEREBRAL INFARCTION [None]
  - MUSCULAR WEAKNESS [None]
